FAERS Safety Report 15762393 (Version 3)
Quarter: 2019Q2

REPORT INFORMATION
  Report Type: Report from Study
  Country: US (occurrence: US)
  Receive Date: 20181226
  Receipt Date: 20190612
  Transmission Date: 20190711
  Serious: Yes (Hospitalization, Disabling)
  Sender: FDA-Public Use
  Company Number: US-ACTELION-A-US2017-154083

PATIENT
  Age: 87 Year
  Sex: Female

DRUGS (16)
  1. OMEPRAZOLE. [Concomitant]
     Active Substance: OMEPRAZOLE
     Dosage: 20 MG, QD
  2. OPSUMIT [Suspect]
     Active Substance: MACITENTAN
     Dosage: EVERY 2 OR 3 DAYS
     Route: 048
  3. SALMON OIL [Concomitant]
     Active Substance: FISH OIL
     Dosage: 500 MG, QD
  4. OPSUMIT [Suspect]
     Active Substance: MACITENTAN
     Indication: PULMONARY ARTERIAL HYPERTENSION
     Dosage: 10 MG, QD
     Route: 048
     Dates: start: 20160119
  5. CENTRUM [Concomitant]
     Active Substance: VITAMINS
     Dosage: UNK MG, QD
  6. VITAMIN C [Concomitant]
     Active Substance: ASCORBIC ACID
     Dosage: 500 MG, QD
  7. GLIMEPIRIDE. [Concomitant]
     Active Substance: GLIMEPIRIDE
     Dosage: 1 MG, QD
  8. SYSTANE (HYPROMELLOSE 2910 (4000 MPA.S)) [Concomitant]
     Active Substance: HYPROMELLOSE 2910 (4000 MPA.S)
     Dosage: UNK MG 4X DAILY
  9. HYDROCODONE [Concomitant]
     Active Substance: HYDROCODONE
     Dosage: UNK MG
  10. CLONIDINE. [Concomitant]
     Active Substance: CLONIDINE
     Dosage: .2 MG, BID
  11. LEVOTHYROXINE. [Concomitant]
     Active Substance: LEVOTHYROXINE
     Indication: HYPOTHYROIDISM
     Dosage: .150 MG
     Dates: start: 20190402
  12. SIMVASTATIN. [Concomitant]
     Active Substance: SIMVASTATIN
     Dosage: 20 MG
  13. OLMESARTAN [Concomitant]
     Active Substance: OLMESARTAN
     Dosage: 40 MG, QD
  14. FUROSEMIDE. [Concomitant]
     Active Substance: FUROSEMIDE
     Dosage: 20-40 MG, PRN
  15. EXCEDRIN [Concomitant]
     Active Substance: ACETAMINOPHEN\ASPIRIN\CAFFEINE
     Dosage: UNK MG, PRN
  16. OXYGEN. [Concomitant]
     Active Substance: OXYGEN
     Dosage: 2.5 L, PER MIN AT NIGHT

REACTIONS (7)
  - Hypothyroidism [Not Recovered/Not Resolved]
  - Fall [Recovered/Resolved]
  - Hospitalisation [Unknown]
  - Product administration error [Unknown]
  - Headache [Unknown]
  - Tooth infection [Not Recovered/Not Resolved]
  - Pain [Not Recovered/Not Resolved]

NARRATIVE: CASE EVENT DATE: 20190402
